FAERS Safety Report 24576475 (Version 2)
Quarter: 2024Q4

REPORT INFORMATION
  Report Type: Spontaneous
  Country: GR (occurrence: GR)
  Receive Date: 20241104
  Receipt Date: 20241210
  Transmission Date: 20250114
  Serious: Yes (Hospitalization)
  Sender: PFIZER
  Company Number: GR-PFIZER INC-PV202400141518

PATIENT
  Age: 90 Year
  Sex: Male
  Weight: 175 kg

DRUGS (11)
  1. VYNDAQEL [Suspect]
     Active Substance: TAFAMIDIS MEGLUMINE
     Indication: Cardiac amyloidosis
     Dosage: 61 MG, DAILY
     Route: 048
     Dates: start: 2021
  2. DUTASTERIDE\TAMSULOSIN [Concomitant]
     Active Substance: DUTASTERIDE\TAMSULOSIN
     Indication: Prostatic disorder
     Dosage: UNK
  3. ALLOPURINOL [Concomitant]
     Active Substance: ALLOPURINOL
     Dosage: 100 MG
  4. SIMVASTATIN [Concomitant]
     Active Substance: SIMVASTATIN
     Indication: Blood cholesterol abnormal
     Dosage: 20 MG
  5. XARELTO [Concomitant]
     Active Substance: RIVAROXABAN
     Dosage: 15 MG
  6. ALBUTEROL SULFATE [Concomitant]
     Active Substance: ALBUTEROL SULFATE
     Dosage: INHALER
  7. LASIX [Concomitant]
     Active Substance: FUROSEMIDE
     Dosage: UNK
  8. ESOMEPRAZOLE MAGNESIUM [Concomitant]
     Active Substance: ESOMEPRAZOLE MAGNESIUM
     Dosage: 40 MG
  9. ALDACTONE [Concomitant]
     Active Substance: SPIRONOLACTONE
     Dosage: UNK
  10. DAPAGLIFLOZIN [Concomitant]
     Active Substance: DAPAGLIFLOZIN
     Indication: Diabetes mellitus
     Dosage: UNK
  11. EFFECOL 3350 [Concomitant]
     Dosage: UNK

REACTIONS (2)
  - Gastric haemorrhage [Recovered/Resolved]
  - Respiratory tract infection [Recovered/Resolved]

NARRATIVE: CASE EVENT DATE: 20241001
